FAERS Safety Report 18059398 (Version 1)
Quarter: 2020Q3

REPORT INFORMATION
  Report Type: Spontaneous
  Country: US (occurrence: US)
  Receive Date: 20200723
  Receipt Date: 20200723
  Transmission Date: 20201103
  Serious: Yes (Other)
  Sender: FDA-Public Use
  Company Number: None

PATIENT
  Age: 30 Year
  Sex: Male
  Weight: 112.5 kg

DRUGS (4)
  1. BENZROPINE [Concomitant]
  2. SERTRALINE [Concomitant]
     Active Substance: SERTRALINE HYDROCHLORIDE
  3. ABILIFY SHOT [Concomitant]
  4. GEODON [Suspect]
     Active Substance: ZIPRASIDONE HYDROCHLORIDE\ZIPRASIDONE MESYLATE
     Indication: BIPOLAR DISORDER
     Dates: start: 20080728, end: 20081225

REACTIONS (5)
  - Male sexual dysfunction [None]
  - Infertility male [None]
  - Male reproductive tract disorder [None]
  - Anorgasmia [None]
  - Partner stress [None]

NARRATIVE: CASE EVENT DATE: 20080801
